FAERS Safety Report 16789489 (Version 1)
Quarter: 2019Q3

REPORT INFORMATION
  Report Type: Spontaneous
  Country: AT (occurrence: AT)
  Receive Date: 20190910
  Receipt Date: 20190910
  Transmission Date: 20191005
  Serious: Yes (Death, Other)
  Sender: FDA-Public Use
  Company Number: AT-ACCORD-154210

PATIENT
  Age: 48 Year
  Sex: Male
  Weight: 90 kg

DRUGS (6)
  1. REVLIMID [Suspect]
     Active Substance: LENALIDOMIDE
     Indication: DIFFUSE LARGE B-CELL LYMPHOMA
     Dosage: UNK
     Route: 065
     Dates: start: 20190417, end: 20190507
  2. BENDAMUSTINE [Suspect]
     Active Substance: BENDAMUSTINE
     Indication: OFF LABEL USE
     Dosage: UNK
     Route: 065
     Dates: start: 20190508
  3. REVLIMID [Suspect]
     Active Substance: LENALIDOMIDE
     Indication: PRODUCT USED FOR UNKNOWN INDICATION
     Dosage: ALSO RECEIVED FROM 17-APR-2019 TO 7-MAY-2019
     Route: 065
  4. BENDAMUSTINE/BENDAMUSTINE HYDROCHLORIDE [Suspect]
     Active Substance: BENDAMUSTINE HYDROCHLORIDE
     Indication: DIFFUSE LARGE B-CELL LYMPHOMA
     Route: 065
     Dates: start: 20190417, end: 20190507
  5. GAZYVARO [Suspect]
     Active Substance: OBINUTUZUMAB
     Indication: DIFFUSE LARGE B-CELL LYMPHOMA
     Dosage: ALSO RECEIVED  FROM 08-MAY-2019
     Route: 042
     Dates: start: 20190417, end: 20190507
  6. OBINUTUZUMAB. [Suspect]
     Active Substance: OBINUTUZUMAB
     Indication: PRODUCT USED FOR UNKNOWN INDICATION
     Dosage: UNK
     Route: 042
     Dates: start: 20190508

REACTIONS (7)
  - Differential white blood cell count abnormal [Not Recovered/Not Resolved]
  - Diffuse large B-cell lymphoma [Fatal]
  - Intentional product use issue [Unknown]
  - Thrombocytopenia [Not Recovered/Not Resolved]
  - Malignant neoplasm progression [Fatal]
  - Hypercalcaemia [Unknown]
  - Anaemia [Not Recovered/Not Resolved]
